FAERS Safety Report 8119611-5 (Version None)
Quarter: 2011Q4

REPORT INFORMATION
  Report Type: 
  Country: None (occurrence: None)
  Receive Date: 20111227
  Receipt Date: 20110923
  Transmission Date: 20120403
  Serious: No
  Sender: FDA-Public Use
  Company Number: PHEH2011US05198

PATIENT
  Age: 63 Year
  Sex: Female

DRUGS (2)
  1. DRUG THERAPY NOS (DRUG THERAPY NOS) [Suspect]
  2. GILENYA [Suspect]
     Dosage: 0.5 MG, QD, ORAL
     Route: 048
     Dates: start: 20110915

REACTIONS (1)
  - RHINORRHOEA [None]
